FAERS Safety Report 4839069-9 (Version None)
Quarter: 2005Q4

REPORT INFORMATION
  Report Type: 
  Country: None (occurrence: None)
  Receive Date: 20051128
  Receipt Date: 20051128
  Transmission Date: 20060501
  Serious: Yes (Death)
  Sender: FDA-Public Use
  Company Number: None

PATIENT
  Sex: Male
  Weight: 96 kg

DRUGS (2)
  1. DOXORUBICIN [Suspect]
     Indication: RENAL CELL CARCINOMA STAGE UNSPECIFIED
     Dosage: SEE IMAGE
     Route: 042
     Dates: start: 20051005
  2. GEMCITABINE [Suspect]
     Dosage: SEE IMAGE
     Route: 042
     Dates: start: 20051005, end: 20051005

REACTIONS (5)
  - ASCITES [None]
  - CARDIO-RESPIRATORY ARREST [None]
  - DYSPNOEA [None]
  - LOSS OF CONSCIOUSNESS [None]
  - PLEURAL EFFUSION [None]
